FAERS Safety Report 5120354-0 (Version None)
Quarter: 2006Q4

REPORT INFORMATION
  Report Type: 
  Country: None (occurrence: None)
  Receive Date: 20061002
  Receipt Date: 20061002
  Transmission Date: 20070319
  Serious: Yes (Other)
  Sender: FDA-Public Use
  Company Number: None

PATIENT
  Age: 48 Year
  Sex: Female
  Weight: 54.4316 kg

DRUGS (2)
  1. LEVAQUIN [Suspect]
     Indication: PNEUMONIA
     Dosage: 500 MG
     Dates: start: 20060921, end: 20060925
  2. LEVAQUIN [Suspect]
     Indication: PNEUMONIA
     Dosage: 500 MG
     Dates: start: 20060921, end: 20060925

REACTIONS (6)
  - ARTHRALGIA [None]
  - HAEMATURIA [None]
  - HYPERSENSITIVITY [None]
  - MUSCLE SPASMS [None]
  - PAIN [None]
  - PAIN IN EXTREMITY [None]
